FAERS Safety Report 4374074-0 (Version None)
Quarter: 2004Q2

REPORT INFORMATION
  Report Type: 
  Country: None (occurrence: None)
  Receive Date: 20040607
  Receipt Date: 20040114
  Transmission Date: 20050107
  Serious: Yes (Hospitalization)
  Sender: FDA-Public Use
  Company Number: AT-ROCHE-355890

PATIENT
  Age: 45 Year
  Sex: Female
  Weight: 57.3 kg

DRUGS (7)
  1. PEG-INTERFERON ALFA 2A (RO 25-8310) [Suspect]
     Route: 058
     Dates: start: 20031125
  2. RIBAVIRIN [Suspect]
     Route: 048
     Dates: start: 20031125
  3. METOCLOPRAMIDE HYDROCHLORIDE [Concomitant]
     Dates: start: 20031209, end: 20031230
  4. FLUCTINE [Concomitant]
     Dates: start: 20031219
  5. AVELOX [Concomitant]
     Dates: start: 20040114, end: 20040119
  6. PARACODEINE [Concomitant]
     Dates: start: 20040107, end: 20040317
  7. SYMBICORT [Concomitant]
     Dosage: DAILY DOSE:160MCG BUDESONIDE AND 4.5MCG OF FORMOTEROL TAKEN IN THE MORNING AND NIGHT.
     Dates: start: 20040113, end: 20040317

REACTIONS (1)
  - DEAFNESS UNILATERAL [None]
